FAERS Safety Report 6900558-4 (Version None)
Quarter: 2010Q3

REPORT INFORMATION
  Report Type: 
  Country: None (occurrence: None)
  Receive Date: 20100803
  Receipt Date: 20100726
  Transmission Date: 20110219
  Serious: Yes (Other)
  Sender: FDA-Public Use
  Company Number: BR-PFIZER INC-2010093235

PATIENT
  Age: 75 Year
  Sex: Male
  Weight: 52 kg

DRUGS (3)
  1. CARDURAN XL [Suspect]
     Indication: BENIGN PROSTATIC HYPERPLASIA
     Dosage: 4 MG, UNK
     Route: 048
  2. NATRILIX - SLOW RELEASE [Suspect]
     Dosage: UNK
  3. UNOPROST [Suspect]
     Dosage: 2 MG, UNK

REACTIONS (2)
  - HYPOTENSION [None]
  - URINARY INCONTINENCE [None]
